FAERS Safety Report 9529461 (Version 1)
Quarter: 2013Q3

REPORT INFORMATION
  Report Type: Report from Study
  Country: IT (occurrence: IT)
  Receive Date: 20130917
  Receipt Date: 20130917
  Transmission Date: 20140515
  Serious: Yes (Other)
  Sender: FDA-Public Use
  Company Number: IT-SANOFI-AVENTIS-2013SA090727

PATIENT
  Age: 32 Year
  Sex: Female

DRUGS (7)
  1. OXALIPLATIN [Suspect]
     Indication: GASTRIC CANCER
     Route: 042
  2. CAPECITABINE [Suspect]
     Indication: GASTRIC CANCER
     Dosage: TWO HALF-DOSES AT 12-H INTERVAL FOR 14 DAYS, GIVEN ON DAYS 2-15, FIRST CYCLE OF LEVEL III
     Route: 048
  3. DOCETAXEL [Suspect]
     Indication: GASTRIC CANCER
     Route: 042
  4. PREDNISONE [Concomitant]
     Indication: PREMEDICATION
     Route: 048
  5. DEXAMETHASONE [Concomitant]
     Indication: PREMEDICATION
     Route: 042
  6. RANITIDINE [Concomitant]
     Indication: PREMEDICATION
     Route: 042
  7. CHLORPHENAMINE MALEATE [Concomitant]
     Indication: PREMEDICATION
     Route: 042

REACTIONS (1)
  - Angina pectoris [Unknown]
